FAERS Safety Report 6933147-6 (Version None)
Quarter: 2010Q3

REPORT INFORMATION
  Report Type: 
  Country: None (occurrence: None)
  Receive Date: 20100820
  Receipt Date: 20100812
  Transmission Date: 20110219
  Serious: Yes (Hospitalization)
  Sender: FDA-Public Use
  Company Number: US-BIOGENIDEC-2009BI036284

PATIENT
  Age: 55 Year
  Sex: Female

DRUGS (1)
  1. TYSABRI [Suspect]
     Indication: MULTIPLE SCLEROSIS
     Route: 042
     Dates: start: 20090917

REACTIONS (6)
  - ANKLE FRACTURE [None]
  - FALL [None]
  - FATIGUE [None]
  - HEMIPARESIS [None]
  - LOSS OF CONTROL OF LEGS [None]
  - WEIGHT INCREASED [None]
